FAERS Safety Report 4347066-5 (Version None)
Quarter: 2004Q2

REPORT INFORMATION
  Report Type: 
  Country: None (occurrence: None)
  Receive Date: 20040426
  Receipt Date: 20040331
  Transmission Date: 20050107
  Serious: Yes (Other)
  Sender: FDA-Public Use
  Company Number: US-GLAXOSMITHKLINE-A0505404A

PATIENT
  Age: 10 Year
  Sex: Male
  Weight: 33.6 kg

DRUGS (5)
  1. ADVAIR DISKUS 100/50 [Suspect]
     Indication: ASTHMA EXERCISE INDUCED
     Dosage: 1PUFF TWICE PER DAY
     Route: 055
     Dates: start: 20040101, end: 20040226
  2. RETROVIR [Suspect]
     Indication: HIV INFECTION
     Dosage: 2CAP TWICE PER DAY
     Route: 048
     Dates: start: 20030603
  3. NORVIR [Concomitant]
     Indication: HIV INFECTION
     Dosage: 300MG TWICE PER DAY
     Route: 048
     Dates: start: 20030603
  4. VIRACEPT [Concomitant]
     Indication: HIV INFECTION
     Dosage: 3TAB TWICE PER DAY
     Route: 048
     Dates: start: 20030603
  5. VIDEX EC [Concomitant]
     Dosage: 1CAP AT NIGHT
     Route: 048

REACTIONS (5)
  - CUSHING'S SYNDROME [None]
  - CUSHINGOID [None]
  - DRUG INTERACTION [None]
  - THYMOMA MALIGNANT [None]
  - WEIGHT INCREASED [None]
